FAERS Safety Report 16087300 (Version 2)
Quarter: 2019Q2

REPORT INFORMATION
  Report Type: Spontaneous
  Country: PL (occurrence: PL)
  Receive Date: 20190319
  Receipt Date: 20190401
  Transmission Date: 20190711
  Serious: Yes (Other)
  Sender: FDA-Public Use
  Company Number: PL-ROCHE-2279808

PATIENT
  Sex: Female
  Weight: 63 kg

DRUGS (10)
  1. SPIRONOLACTONE. [Concomitant]
     Active Substance: SPIRONOLACTONE
  2. TRASTUZUMAB. [Suspect]
     Active Substance: TRASTUZUMAB
     Indication: BREAST CANCER
     Route: 042
     Dates: start: 201503, end: 2016
  3. TRASTUZUMAB. [Suspect]
     Active Substance: TRASTUZUMAB
     Route: 042
     Dates: start: 201703, end: 2018
  4. LOSARTAN. [Concomitant]
     Active Substance: LOSARTAN
  5. CARVEDILOL. [Concomitant]
     Active Substance: CARVEDILOL
  6. PERTUZUMAB. [Suspect]
     Active Substance: PERTUZUMAB
     Indication: BREAST CANCER
     Route: 065
     Dates: start: 201703, end: 2018
  7. CAPECITABINE. [Suspect]
     Active Substance: CAPECITABINE
     Indication: BREAST CANCER
     Route: 065
     Dates: start: 201804
  8. LAPATINIB [Concomitant]
     Active Substance: LAPATINIB
     Indication: BREAST CANCER
     Route: 065
     Dates: start: 201804
  9. RAMIPRIL. [Concomitant]
     Active Substance: RAMIPRIL
  10. DOCETAXEL. [Concomitant]
     Active Substance: DOCETAXEL
     Indication: BREAST CANCER
     Route: 065
     Dates: end: 2018

REACTIONS (16)
  - Cough [Unknown]
  - Mood altered [Unknown]
  - Exercise tolerance decreased [Unknown]
  - Palpitations [Unknown]
  - Neoplasm [Unknown]
  - Ejection fraction decreased [Unknown]
  - Breast cancer recurrent [Unknown]
  - Asthenia [Unknown]
  - Ventricular hypokinesia [Unknown]
  - Cardiac failure [Recovered/Resolved]
  - Malaise [Unknown]
  - Pulmonary mass [Unknown]
  - Fatigue [Unknown]
  - Ejection fraction decreased [Unknown]
  - Left ventricular enlargement [Unknown]
  - Lymphoma [Unknown]

NARRATIVE: CASE EVENT DATE: 201509
